FAERS Safety Report 6437892-0 (Version None)
Quarter: 2009Q4

REPORT INFORMATION
  Report Type: 
  Country: None (occurrence: None)
  Receive Date: 20091112
  Receipt Date: 20081014
  Transmission Date: 20100525
  Serious: No
  Sender: FDA-Public Use
  Company Number: US-ASTRAZENECA-2009UW15508

PATIENT
  Age: 75 Year
  Sex: Female

DRUGS (2)
  1. PRILOSEC OTC [Suspect]
     Indication: DYSPEPSIA
     Dosage: 1 TABLET, 1 /DAY
     Route: 048
     Dates: start: 20081007, end: 20081014
  2. COUMADIN [Concomitant]

REACTIONS (2)
  - HEADACHE [None]
  - LABELLED DRUG-DRUG INTERACTION MEDICATION ERROR [None]
